FAERS Safety Report 9611216 (Version 3)
Quarter: 2013Q4

REPORT INFORMATION
  Report Type: Report from Study
  Country: DE (occurrence: DE)
  Receive Date: 20131009
  Receipt Date: 20131127
  Transmission Date: 20140711
  Serious: Yes (Hospitalization)
  Sender: FDA-Public Use
  Company Number: DE-PFIZER INC-2013283459

PATIENT
  Age: 25 Year
  Sex: Male

DRUGS (5)
  1. ETANERCEPT [Suspect]
     Indication: JUVENILE IDIOPATHIC ARTHRITIS
     Dosage: 50 MG, UNK
     Dates: start: 20090105
  2. ETANERCEPT [Suspect]
     Dosage: 50 MG, EVERY 14 DAYS
  3. ETANERCEPT [Suspect]
     Dosage: 50 MG, EVERY 7 DAYS
  4. ETANERCEPT [Suspect]
     Dosage: 50 MG, EVERY 40 DAYS
  5. SULFASALAZINE [Concomitant]
     Dosage: 1000 MG, UNK
     Dates: start: 20000609

REACTIONS (1)
  - Anogenital warts [Recovered/Resolved]
